FAERS Safety Report 15461957 (Version 4)
Quarter: 2018Q4

REPORT INFORMATION
  Report Type: Report from Study
  Country: US (occurrence: US)
  Receive Date: 20181003
  Receipt Date: 20181214
  Transmission Date: 20190204
  Serious: Yes (Hospitalization, Other)
  Sender: FDA-Public Use
  Company Number: US-ALEXION PHARMACEUTICALS INC.-A201812477

PATIENT
  Sex: Female

DRUGS (1)
  1. STRENSIQ [Suspect]
     Active Substance: ASFOTASE ALFA
     Indication: HYPOPHOSPHATASIA
     Route: 065

REACTIONS (11)
  - Abdominal pain [Recovering/Resolving]
  - Condition aggravated [Unknown]
  - Malabsorption [Unknown]
  - Vomiting [Recovering/Resolving]
  - Gastric hypomotility [Unknown]
  - Gastrointestinal pain [Unknown]
  - Anastomotic ulcer haemorrhage [Recovering/Resolving]
  - Headache [Unknown]
  - Procedural pain [Unknown]
  - Hypophagia [Unknown]
  - Constipation [Unknown]
